FAERS Safety Report 7013321-3 (Version None)
Quarter: 2010Q3

REPORT INFORMATION
  Report Type: 
  Country: None (occurrence: None)
  Receive Date: 20100924
  Receipt Date: 20100922
  Transmission Date: 20110219
  Serious: Yes (Hospitalization)
  Sender: FDA-Public Use
  Company Number: DE-SANOFI-AVENTIS-F04200900066

PATIENT
  Age: 72 Year
  Sex: Male

DRUGS (9)
  1. OXALIPLATIN [Suspect]
     Route: 041
     Dates: start: 20081228, end: 20081228
  2. FLUOROURACIL [Suspect]
     Route: 041
     Dates: start: 20081228, end: 20081228
  3. FOLINIC ACID [Suspect]
     Route: 041
     Dates: start: 20081228, end: 20081228
  4. FORTECORTIN [Concomitant]
     Indication: PREMEDICATION
     Dosage: UNIT DOSE: 8 MG
     Route: 065
  5. KEVATRIL [Concomitant]
     Indication: PREMEDICATION
     Dosage: UNIT DOSE: 3 MG
     Route: 065
  6. CALCIUM GLUCONATE [Concomitant]
     Indication: PREMEDICATION
     Dosage: UNIT DOSE: 1000 MG
     Route: 065
  7. MAGNESIUM SULFATE [Concomitant]
     Indication: PREMEDICATION
     Dosage: UNIT DOSE: 1000 MG
     Route: 065
  8. APREPITANT [Concomitant]
     Indication: PREMEDICATION
     Dosage: DOSE TEXT: 128 MG/80 MG
     Route: 048
  9. ALLOPURINOL [Concomitant]
     Indication: PRODUCT USED FOR UNKNOWN INDICATION
     Route: 048

REACTIONS (4)
  - DISEASE PROGRESSION [None]
  - ILEUS [None]
  - PLEURAL EFFUSION [None]
  - PNEUMONIA [None]
